FAERS Safety Report 7646841-9 (Version None)
Quarter: 2011Q3

REPORT INFORMATION
  Report Type: 
  Country: None (occurrence: None)
  Receive Date: 20110801
  Receipt Date: 20110718
  Transmission Date: 20111222
  Serious: Yes (Hospitalization)
  Sender: FDA-Public Use
  Company Number: US-ELI_LILLY_AND_COMPANY-US201107006355

PATIENT
  Age: 67 Year
  Sex: Female

DRUGS (25)
  1. TORSEMIDE [Concomitant]
  2. VITAMIN D [Concomitant]
  3. MIRALAX [Concomitant]
  4. TYLENOL                                 /SCH/ [Concomitant]
  5. FORTEO [Suspect]
     Indication: OSTEOPOROSIS
     Dosage: 20 UG, QD
  6. AMLODIPINE BESYLATE [Concomitant]
  7. MULTI-VITAMIN [Concomitant]
  8. PROMETHAZINE [Concomitant]
  9. OXYCONTIN [Concomitant]
  10. ALBUTEROL SULFATE AUTOHALER [Concomitant]
  11. DOCUSATE SODIUM [Concomitant]
  12. EFFEXOR [Concomitant]
  13. LIPITOR [Concomitant]
  14. ZOFRAN [Concomitant]
  15. CATAPRES                           /00171101/ [Concomitant]
  16. ISOSORBIDE MONONITRATE [Concomitant]
  17. DEMEROL [Concomitant]
  18. MILK OF MAGNESIUM [Concomitant]
  19. FLUNISOLIDE [Concomitant]
  20. RANITIDINE [Concomitant]
  21. AMBIEN [Concomitant]
  22. LOPERAMIDE HCL [Concomitant]
  23. HYDRALAZINE HCL [Concomitant]
  24. CARVEDILOL [Concomitant]
  25. FLONASE [Concomitant]

REACTIONS (3)
  - DEHYDRATION [None]
  - CONFUSIONAL STATE [None]
  - ABNORMAL BEHAVIOUR [None]
